FAERS Safety Report 25457675 (Version 1)
Quarter: 2025Q2

REPORT INFORMATION
  Report Type: Spontaneous
  Country: CN (occurrence: CN)
  Receive Date: 20250619
  Receipt Date: 20250619
  Transmission Date: 20250716
  Serious: Yes (Other)
  Sender: BEIGENE
  Company Number: CN-BEIGENE-BGN-2025-009537

PATIENT
  Age: 58 Year
  Weight: 67 kg

DRUGS (9)
  1. TISLELIZUMAB [Suspect]
     Active Substance: TISLELIZUMAB
     Indication: Cholangiocarcinoma
     Dosage: 200 MILLIGRAM, Q3WK D1
  2. TISLELIZUMAB [Suspect]
     Active Substance: TISLELIZUMAB
     Dosage: 200 MILLIGRAM, Q3WK D1
     Route: 041
  3. TISLELIZUMAB [Suspect]
     Active Substance: TISLELIZUMAB
     Dosage: 200 MILLIGRAM, Q3WK D1
     Route: 041
  4. TISLELIZUMAB [Suspect]
     Active Substance: TISLELIZUMAB
     Dosage: 200 MILLIGRAM, Q3WK D1
  5. GEMCITABINE [Concomitant]
     Active Substance: GEMCITABINE
     Indication: Cholangiocarcinoma
     Dosage: 1700 MILLIGRAM, Q3WK D1 D8
     Route: 041
  6. GEMCITABINE [Concomitant]
     Active Substance: GEMCITABINE
     Dosage: 1700 MILLIGRAM, Q3WK D1 D8
  7. CISPLATIN [Concomitant]
     Active Substance: CISPLATIN
     Indication: Cholangiocarcinoma
     Dosage: 40 MILLIGRAM, Q3WK D1 D8
     Route: 041
  8. CISPLATIN [Concomitant]
     Active Substance: CISPLATIN
     Dosage: 40 MILLIGRAM, Q3WK D1 D8
  9. LENVATINIB [Concomitant]
     Active Substance: LENVATINIB
     Indication: Cholangiocarcinoma

REACTIONS (1)
  - Hyperadrenocorticism [Unknown]
